FAERS Safety Report 8511666-9 (Version None)
Quarter: 2012Q3

REPORT INFORMATION
  Report Type: 
  Country: None (occurrence: None)
  Receive Date: 20120716
  Receipt Date: 20120702
  Transmission Date: 20120928
  Serious: Yes (Hospitalization, Other)
  Sender: FDA-Public Use
  Company Number: US-ELI_LILLY_AND_COMPANY-US201204009550

PATIENT
  Age: 86 Year
  Sex: Female

DRUGS (20)
  1. LIDODERM [Concomitant]
  2. ZYRTEC [Concomitant]
  3. LASIX [Concomitant]
  4. SYNTHROID [Concomitant]
  5. ALBUTEROL [Concomitant]
  6. CYMBALTA [Suspect]
     Dosage: 60 MG, QD
     Dates: start: 20110609
  7. SINGULAIR [Concomitant]
  8. REGLAN [Concomitant]
  9. REQUIP [Concomitant]
     Dosage: 4 MG, UNK
  10. FISH OIL [Concomitant]
  11. PRILOSEC [Concomitant]
  12. ALLOPURINOL [Concomitant]
  13. OXYCODONE HCL [Concomitant]
     Indication: PAIN
     Dosage: UNK, PRN
  14. CYMBALTA [Suspect]
     Dosage: 30 MG, QD
     Dates: end: 20120201
  15. IRON [Concomitant]
  16. ENSURE                             /06184901/ [Concomitant]
  17. CARAFATE                                /USA/ [Concomitant]
  18. MELATONIN [Concomitant]
  19. POTASSIUM CHLORIDE [Concomitant]
  20. VITAMIN D [Concomitant]

REACTIONS (4)
  - HOSPITALISATION [None]
  - DYSPHAGIA [None]
  - CARDIAC FAILURE CONGESTIVE [None]
  - DYSPNOEA [None]
